FAERS Safety Report 17086687 (Version 2)
Quarter: 2020Q1

REPORT INFORMATION
  Report Type: Spontaneous
  Country: CA (occurrence: CA)
  Receive Date: 20191128
  Receipt Date: 20200319
  Transmission Date: 20200409
  Serious: Yes (Other)
  Sender: FDA-Public Use
  Company Number: CA-AUROBINDO-AUR-APL-2019-075093

PATIENT
  Sex: Male

DRUGS (3)
  1. GABAPENTIN. [Suspect]
     Active Substance: GABAPENTIN
     Indication: PRODUCT USED FOR UNKNOWN INDICATION
     Dosage: 300 MILLIGRAM, ONCE A DAY
     Route: 065
  2. SUBOXONE [Suspect]
     Active Substance: BUPRENORPHINE HYDROCHLORIDE\NALOXONE HYDROCHLORIDE
     Dosage: 6 MILLIGRAM, ONCE A DAY (2 MILLIGRAM 3 EVERY 1 DAY)
     Route: 060
  3. SUBOXONE [Suspect]
     Active Substance: BUPRENORPHINE HYDROCHLORIDE\NALOXONE HYDROCHLORIDE
     Indication: PAIN MANAGEMENT
     Dosage: 8 MILLIGRAM, 3 TIMES A DAY
     Route: 060

REACTIONS (10)
  - Skull fracture [Unknown]
  - Dizziness [Unknown]
  - Fall [Unknown]
  - Intentional underdose [Unknown]
  - Drug ineffective for unapproved indication [Unknown]
  - Haemoptysis [Unknown]
  - Product use issue [Unknown]
  - Anaemia [Unknown]
  - Pain [Unknown]
  - Off label use [Unknown]
